FAERS Safety Report 6317510-2 (Version None)
Quarter: 2009Q3

REPORT INFORMATION
  Report Type: 
  Country: None (occurrence: None)
  Receive Date: 20090821
  Receipt Date: 20090814
  Transmission Date: 20100115
  Serious: No
  Sender: FDA-Public Use
  Company Number: US-B.I. PHARMACEUTICALS,INC./RIDGEFIELD-2009-BP-09715BP

PATIENT
  Age: 17 Year
  Sex: Female

DRUGS (2)
  1. ZANTAC 150 [Suspect]
     Indication: EXPOSURE TO TOXIC AGENT
     Dosage: 150 MG
     Route: 048
     Dates: start: 20090813
  2. ZYRTEC [Suspect]
     Indication: EXPOSURE TO TOXIC AGENT
     Dosage: 10 MG
     Route: 048
     Dates: start: 20090813

REACTIONS (3)
  - ARTHRALGIA [None]
  - LIP SWELLING [None]
  - OEDEMA PERIPHERAL [None]
